FAERS Safety Report 16842908 (Version 1)
Quarter: 2019Q3

REPORT INFORMATION
  Report Type: Spontaneous
  Country: CA (occurrence: CA)
  Receive Date: 20190924
  Receipt Date: 20190924
  Transmission Date: 20191005
  Serious: Yes (Life-Threatening, Hospitalization)
  Sender: FDA-Public Use
  Company Number: CA-TEVA-2019-CA-1113624

PATIENT
  Age: 76 Year
  Sex: Female

DRUGS (8)
  1. GLYBURIDE. [Suspect]
     Active Substance: GLYBURIDE
     Route: 065
  2. JANUVIA [Suspect]
     Active Substance: SITAGLIPTIN PHOSPHATE
     Route: 065
  3. ASA [Concomitant]
     Active Substance: ASPIRIN
  4. METFORMIN [Suspect]
     Active Substance: METFORMIN HYDROCHLORIDE
     Route: 065
  5. INVOKANA [Suspect]
     Active Substance: CANAGLIFLOZIN
     Dosage: 100 MILLIGRAM DAILY;
     Route: 048
  6. PERINDOPRIL [Concomitant]
     Active Substance: PERINDOPRIL
  7. SIMVASTATIN. [Concomitant]
     Active Substance: SIMVASTATIN
  8. ATENOLOL TABLETS, BP [Concomitant]
     Active Substance: ATENOLOL

REACTIONS (3)
  - Urinary tract infection bacterial [Recovering/Resolving]
  - Urosepsis [Recovering/Resolving]
  - Diabetic ketoacidosis [Recovering/Resolving]
